FAERS Safety Report 16040569 (Version 4)
Quarter: 2019Q2

REPORT INFORMATION
  Report Type: Report from Study
  Country: DE (occurrence: DE)
  Receive Date: 20190306
  Receipt Date: 20190411
  Transmission Date: 20190711
  Serious: Yes (Hospitalization)
  Sender: FDA-Public Use
  Company Number: DE-ROCHE-2271638

PATIENT
  Age: 33 Year
  Sex: Female
  Weight: 55 kg

DRUGS (7)
  1. PREDNISOLUT [Concomitant]
     Active Substance: PREDNISOLONE
     Indication: PREMEDICATION
     Dosage: PREMEDICATION PRIOR TO ADMINISTRATION OF OCREVUS
     Route: 042
     Dates: start: 20180926
  2. OCRELIZUMAB. [Suspect]
     Active Substance: OCRELIZUMAB
     Indication: PROGRESSIVE MULTIPLE SCLEROSIS
     Route: 042
     Dates: start: 20180926, end: 20181012
  3. PARACETAMOL [Concomitant]
     Active Substance: ACETAMINOPHEN
     Indication: PREMEDICATION
     Dosage: PREMEDICATION PRIOR TO ADMINISTRATION OF OCREVUS
     Route: 048
     Dates: start: 20180926
  4. HISTAKUT [Concomitant]
     Indication: PREMEDICATION
     Dosage: PREMEDICATION PRIOR TO ADMINISTRATION OF OCREVUS
     Route: 042
     Dates: start: 20180926
  5. IBUPROFEN. [Concomitant]
     Active Substance: IBUPROFEN
     Indication: PAIN
     Dosage: AS NEEDED
     Route: 048
  6. PANTOZOL [Concomitant]
     Active Substance: PANTOPRAZOLE SODIUM
     Indication: PREMEDICATION
     Dosage: PREMEDICATION PRIOR TO ADMINISTRATION OF OCREVUS STARTING DOSE 1X EVERY 2 WEEK
     Route: 048
     Dates: start: 20180926
  7. PANTOZOL [Concomitant]
     Active Substance: PANTOPRAZOLE SODIUM
     Indication: POST HERPETIC NEURALGIA
     Route: 048
     Dates: start: 201902, end: 201902

REACTIONS (1)
  - Groin pain [Not Recovered/Not Resolved]

NARRATIVE: CASE EVENT DATE: 20190119
